FAERS Safety Report 7913721-0 (Version None)
Quarter: 2011Q4

REPORT INFORMATION
  Report Type: 
  Country: None (occurrence: None)
  Receive Date: 20111115
  Receipt Date: 20110912
  Transmission Date: 20120403
  Serious: No
  Sender: FDA-Public Use
  Company Number: JP-BAYER-2011-008064

PATIENT
  Age: 77 Year
  Sex: Male
  Weight: 59 kg

DRUGS (3)
  1. NEXAVAR [Suspect]
     Indication: HEPATIC NEOPLASM MALIGNANT
     Dosage: 200 MG, BID
     Route: 048
     Dates: start: 20110107
  2. NEXAVAR [Suspect]
     Dosage: 400 MG, QD
     Route: 048
     Dates: start: 20110705, end: 20110805
  3. NEXAVAR [Suspect]
     Dosage: 400 MG, QD
     Route: 048
     Dates: start: 20110401, end: 20110621

REACTIONS (14)
  - HEARING IMPAIRED [None]
  - EAR DISCOMFORT [None]
  - DECREASED APPETITE [None]
  - NAUSEA [None]
  - TINNITUS [None]
  - ABDOMINAL DISCOMFORT [None]
  - DYSPHONIA [None]
  - WEIGHT DECREASED [None]
  - ERUCTATION [None]
  - PRURITUS [None]
  - DIARRHOEA [None]
  - PYREXIA [None]
  - COUGH [None]
  - ERYTHEMA [None]
